FAERS Safety Report 6808062-9 (Version None)
Quarter: 2010Q2

REPORT INFORMATION
  Report Type: 
  Country: None (occurrence: None)
  Receive Date: 20100629
  Receipt Date: 20090525
  Transmission Date: 20101027
  Serious: Yes (Other)
  Sender: FDA-Public Use
  Company Number: US-PFIZER INC-2009166398

PATIENT
  Age: 90 Year
  Sex: Female

DRUGS (1)
  1. ZYVOX [Suspect]
     Indication: BACTERIAL INFECTION
     Route: 048

REACTIONS (1)
  - CLOSTRIDIUM DIFFICILE COLITIS [None]
